FAERS Safety Report 7019659-8 (Version None)
Quarter: 2010Q3

REPORT INFORMATION
  Report Type: 
  Country: None (occurrence: None)
  Receive Date: 20100929
  Receipt Date: 20100514
  Transmission Date: 20110219
  Serious: Yes (Other)
  Sender: FDA-Public Use
  Company Number: DE-RANBAXY-2010RR-33237

PATIENT

DRUGS (6)
  1. FENOFIBRATE [Suspect]
     Indication: HYPERCHOLESTEROLAEMIA
     Dosage: 200 MG / DAY
     Route: 048
     Dates: start: 20090629, end: 20090702
  2. NIFEDIPINE [Concomitant]
     Dosage: UNK
     Route: 065
     Dates: start: 20060323
  3. ASPIRIN [Concomitant]
     Dosage: UNK
     Route: 065
     Dates: start: 20030823
  4. EZETIMIBE [Concomitant]
     Dosage: UNK
     Route: 065
     Dates: start: 20090401
  5. FENOFIBRATE [Suspect]
     Dosage: 100 MG, UNK
     Route: 048
     Dates: start: 20090703, end: 20090822
  6. ROSUVASTATIN CALCIUM [Concomitant]
     Dosage: UNK
     Route: 065
     Dates: end: 20090628

REACTIONS (6)
  - ABDOMINAL DISCOMFORT [None]
  - ALANINE AMINOTRANSFERASE INCREASED [None]
  - ASPARTATE AMINOTRANSFERASE INCREASED [None]
  - DYSPEPSIA [None]
  - HEPATIC FUNCTION ABNORMAL [None]
  - HYPOAESTHESIA [None]
